FAERS Safety Report 4451734-4 (Version None)
Quarter: 2004Q3

REPORT INFORMATION
  Report Type: 
  Country: None (occurrence: None)
  Receive Date: 20040915
  Receipt Date: 20040901
  Transmission Date: 20050211
  Serious: Yes (Hospitalization)
  Sender: FDA-Public Use
  Company Number: 04P-056-0267917-00

PATIENT
  Age: 40 Year
  Sex: Female

DRUGS (8)
  1. KALETRA [Suspect]
     Dosage: PER ORAL
     Route: 048
     Dates: start: 20040526, end: 20040604
  2. LAMIVUDINE [Suspect]
     Dosage: PER ORAL
     Route: 048
     Dates: start: 20040526, end: 20040604
  3. DIDANOSINE [Suspect]
     Dosage: PER ORAL
     Route: 048
     Dates: start: 20040526, end: 20040604
  4. ATOVAQUONE [Concomitant]
  5. PYRIMETHAMINE TAB [Concomitant]
  6. RITONAVIR [Concomitant]
  7. ATAZANAVIR [Concomitant]
  8. FUZEON [Concomitant]

REACTIONS (10)
  - CYTOLYTIC HEPATITIS [None]
  - EXANTHEM [None]
  - INTERSTITIAL LUNG DISEASE [None]
  - NAUSEA [None]
  - PRURITUS [None]
  - PURPURA [None]
  - PYREXIA [None]
  - RASH MACULO-PAPULAR [None]
  - VIRAL INFECTION [None]
  - VOMITING [None]
